FAERS Safety Report 5049253-X (Version None)
Quarter: 2006Q3

REPORT INFORMATION
  Report Type: 
  Country: None (occurrence: None)
  Receive Date: 20060707
  Receipt Date: 20060626
  Transmission Date: 20061208
  Serious: Yes (Other)
  Sender: FDA-Public Use
  Company Number: AZAUS200600227

PATIENT
  Sex: Male

DRUGS (1)
  1. VIDAZA [Suspect]
     Dosage: SUBCUTANEOUS
     Route: 058

REACTIONS (2)
  - SPLENIC RUPTURE [None]
  - SPLENOMEGALY [None]
